FAERS Safety Report 8007361-5 (Version None)
Quarter: 2011Q4

REPORT INFORMATION
  Report Type: 
  Country: None (occurrence: None)
  Receive Date: 20111227
  Receipt Date: 20111221
  Transmission Date: 20120403
  Serious: Yes (Other)
  Sender: FDA-Public Use
  Company Number: US-BAYER-200931976NA

PATIENT
  Age: 44 Year
  Sex: Female

DRUGS (3)
  1. BETASERON [Suspect]
     Route: 058
  2. BETASERON [Suspect]
     Indication: MULTIPLE SCLEROSIS
     Route: 058
     Dates: start: 20090722
  3. BETASERON [Suspect]
     Route: 058

REACTIONS (9)
  - PARAESTHESIA [None]
  - DYSKINESIA [None]
  - INJECTION SITE MASS [None]
  - INJECTION SITE ERYTHEMA [None]
  - INJECTION SITE RASH [None]
  - INJECTION SITE HAEMATOMA [None]
  - INJECTION SITE LACERATION [None]
  - INJECTION SITE PAIN [None]
  - MUSCLE SPASMS [None]
